FAERS Safety Report 15665433 (Version 2)
Quarter: 2018Q4

REPORT INFORMATION
  Report Type: Spontaneous
  Country: JP (occurrence: JP)
  Receive Date: 20181128
  Receipt Date: 20181217
  Transmission Date: 20190205
  Serious: Yes (Other)
  Sender: FDA-Public Use
  Company Number: JP-JNJFOC-20181137274

PATIENT
  Age: 10 Decade
  Sex: Female

DRUGS (7)
  1. MARZULENE COMBINATION [Concomitant]
     Route: 065
  2. NICORANDIL [Concomitant]
     Active Substance: NICORANDIL
     Route: 065
  3. ARTIST [Concomitant]
     Active Substance: CARVEDILOL
     Route: 065
  4. ALLEGRA [Concomitant]
     Active Substance: FEXOFENADINE HYDROCHLORIDE
     Route: 065
  5. EFURANOL [Concomitant]
     Route: 065
  6. XARELTO [Suspect]
     Active Substance: RIVAROXABAN
     Indication: ATRIAL FIBRILLATION
     Route: 048
     Dates: start: 20160801
  7. FRANDOL [Concomitant]
     Active Substance: ISOSORBIDE DINITRATE
     Route: 065

REACTIONS (2)
  - Fibrin D dimer increased [Recovered/Resolved]
  - Deep vein thrombosis [Unknown]

NARRATIVE: CASE EVENT DATE: 20160801
